FAERS Safety Report 7586310-8 (Version None)
Quarter: 2011Q3

REPORT INFORMATION
  Report Type: 
  Country: None (occurrence: None)
  Receive Date: 20110701
  Receipt Date: 20110623
  Transmission Date: 20111222
  Serious: Yes (Hospitalization)
  Sender: FDA-Public Use
  Company Number: US-SANOFI-AVENTIS-2011SA036147

PATIENT
  Age: 66 Year
  Sex: Female
  Weight: 69.4 kg

DRUGS (7)
  1. POTASSIUM [Concomitant]
  2. ISOSORBIDE [Concomitant]
  3. LASIX [Concomitant]
  4. LANTUS [Suspect]
     Indication: TYPE 2 DIABETES MELLITUS
     Dosage: 12-22 UNITS DAILY
     Route: 058
     Dates: start: 20091127
  5. SOLOSTAR [Suspect]
     Indication: TYPE 2 DIABETES MELLITUS
  6. PLAVIX [Concomitant]
  7. GLIPIZIDE [Concomitant]

REACTIONS (3)
  - BLOOD GLUCOSE INCREASED [None]
  - FEMUR FRACTURE [None]
  - EXPIRED DRUG ADMINISTERED [None]
